FAERS Safety Report 5324534-0 (Version None)
Quarter: 2007Q2

REPORT INFORMATION
  Report Type: 
  Country: None (occurrence: None)
  Receive Date: 20070514
  Receipt Date: 20070502
  Transmission Date: 20071010
  Serious: Yes (Other)
  Sender: FDA-Public Use
  Company Number: US-PFIZER INC-2007035775

PATIENT
  Sex: Male
  Weight: 85.7 kg

DRUGS (7)
  1. XALATAN [Suspect]
     Indication: GLAUCOMA
  2. HYDROCHLOROTHIAZIDE [Concomitant]
  3. ACETYLSALICYLIC ACID SRT [Concomitant]
  4. ALPRAZOLAM [Concomitant]
  5. DIGITEK [Concomitant]
  6. WARFARIN SODIUM [Concomitant]
  7. ALL OTHER THERAPEUTIC PRODUCTS [Concomitant]

REACTIONS (4)
  - DIPLOPIA [None]
  - HEADACHE [None]
  - VERTIGO [None]
  - VISUAL DISTURBANCE [None]
